FAERS Safety Report 15044146 (Version 2)
Quarter: 2018Q3

REPORT INFORMATION
  Report Type: Spontaneous
  Country: NL (occurrence: NL)
  Receive Date: 20180621
  Receipt Date: 20180716
  Transmission Date: 20181010
  Serious: Yes (Disabling, Congenital Anomaly, Other)
  Sender: FDA-Public Use
  Company Number: PHHY2018NL026803

PATIENT
  Sex: Female

DRUGS (2)
  1. DEXAMETHASONE. [Suspect]
     Active Substance: DEXAMETHASONE
     Indication: GENE MUTATION
     Dosage: 1.5 MG, QD ((DAILY DOSE OF 1.5MG IN 3 DOSAGES))
     Route: 065
  2. DEXAMETHASONE. [Suspect]
     Active Substance: DEXAMETHASONE
     Dosage: 25 UG, QD
     Route: 065

REACTIONS (7)
  - Cleft palate [Recovering/Resolving]
  - Virilism [Recovering/Resolving]
  - Learning disability [Unknown]
  - Cleft lip [Recovering/Resolving]
  - Foetal exposure during pregnancy [Unknown]
  - Memory impairment [Unknown]
  - Adrenogenital syndrome [Recovering/Resolving]
